FAERS Safety Report 7170730-X (Version None)
Quarter: 2010Q4

REPORT INFORMATION
  Report Type: 
  Country: None (occurrence: None)
  Receive Date: 20101214
  Receipt Date: 20101214
  Transmission Date: 20110411
  Serious: Yes (Other)
  Sender: FDA-Public Use
  Company Number: None

PATIENT
  Age: 51 Year
  Sex: Female
  Weight: 77.1115 kg

DRUGS (1)
  1. DEPO-MEDROL [Suspect]
     Indication: TRIGGER FINGER

REACTIONS (7)
  - CUSHINGOID [None]
  - ERYTHEMA [None]
  - LOCAL SWELLING [None]
  - PAIN [None]
  - PRURITUS [None]
  - SKIN EXFOLIATION [None]
  - SWELLING FACE [None]
